FAERS Safety Report 16683872 (Version 2)
Quarter: 2020Q1

REPORT INFORMATION
  Report Type: Spontaneous
  Country: ES (occurrence: ES)
  Receive Date: 20190808
  Receipt Date: 20200205
  Transmission Date: 20200409
  Serious: Yes (Disabling)
  Sender: FDA-Public Use
  Company Number: ES-JNJFOC-20190802050

PATIENT
  Age: 65 Year
  Sex: Female
  Weight: 72.5 kg

DRUGS (1)
  1. REMICADE [Suspect]
     Active Substance: INFLIXIMAB
     Indication: CROHN^S DISEASE
     Dosage: 5 MG/KG ON WEEKS 0,2 AND 6;
     Route: 042
     Dates: start: 20190701

REACTIONS (4)
  - Headache [Recovered/Resolved]
  - Dysarthria [Recovered/Resolved]
  - Off label use [Unknown]
  - Product use issue [Unknown]

NARRATIVE: CASE EVENT DATE: 201907
